FAERS Safety Report 17306001 (Version 1)
Quarter: 2020Q1

REPORT INFORMATION
  Report Type: Report from Study
  Country: DE (occurrence: DE)
  Receive Date: 20200123
  Receipt Date: 20200123
  Transmission Date: 20200409
  Serious: Yes (Congenital Anomaly)
  Sender: FDA-Public Use
  Company Number: DE-ASTRAZENECA-2020SE02219

PATIENT

DRUGS (4)
  1. METAMIZOL [Suspect]
     Active Substance: METAMIZOLE SODIUM
     Route: 064
  2. OMEPRAZOLE. [Suspect]
     Active Substance: OMEPRAZOLE
     Route: 064
  3. CARBAMAZEPINE. [Suspect]
     Active Substance: CARBAMAZEPINE
     Route: 064
  4. FROVATRIPTAN. [Suspect]
     Active Substance: FROVATRIPTAN
     Route: 064

REACTIONS (2)
  - Poland^s syndrome [Unknown]
  - Syndactyly [Unknown]
